FAERS Safety Report 10437439 (Version 1)
Quarter: 2014Q3

REPORT INFORMATION
  Report Type: Spontaneous
  Country: US (occurrence: US)
  Receive Date: 20140908
  Receipt Date: 20140908
  Transmission Date: 20150326
  Serious: No
  Sender: FDA-Public Use
  Company Number: US-BRISTOL-MYERS SQUIBB COMPANY-20965406

PATIENT
  Age: 37 Year
  Sex: Female
  Weight: 61.22 kg

DRUGS (3)
  1. ABILIFY MAINTENA [Suspect]
     Active Substance: ARIPIPRAZOLE
     Indication: SCHIZOAFFECTIVE DISORDER
     Route: 030
     Dates: start: 201403
  2. ABILIFY [Suspect]
     Active Substance: ARIPIPRAZOLE
     Indication: SCHIZOAFFECTIVE DISORDER
     Route: 048
     Dates: start: 201403
  3. COGENTIN [Concomitant]
     Active Substance: BENZTROPINE MESYLATE

REACTIONS (7)
  - Off label use [Unknown]
  - Low density lipoprotein abnormal [Unknown]
  - Muscular weakness [Unknown]
  - Vitamin D deficiency [Unknown]
  - Affective disorder [Unknown]
  - Gait disturbance [Unknown]
  - Personality disorder [Unknown]

NARRATIVE: CASE EVENT DATE: 201403
